FAERS Safety Report 15925836 (Version 1)
Quarter: 2019Q1

REPORT INFORMATION
  Report Type: Report from Study
  Country: US (occurrence: US)
  Receive Date: 20190206
  Receipt Date: 20190206
  Transmission Date: 20190417
  Serious: Yes (Other)
  Sender: FDA-Public Use
  Company Number: US-SA-2018SA320069

PATIENT
  Age: 41 Year
  Sex: Female

DRUGS (1)
  1. ALEMTUZUMAB [Suspect]
     Active Substance: ALEMTUZUMAB
     Indication: MULTIPLE SCLEROSIS
     Dosage: 12 MG, QD
     Route: 041
     Dates: start: 20181112, end: 20181116

REACTIONS (8)
  - Lethargy [Recovered/Resolved]
  - Rash [Not Recovered/Not Resolved]
  - Haemorrhage [Unknown]
  - Haematoma [Not Recovered/Not Resolved]
  - Pain [Unknown]
  - Urticaria [Recovered/Resolved]
  - Fatigue [Recovered/Resolved]
  - Headache [Not Recovered/Not Resolved]

NARRATIVE: CASE EVENT DATE: 201811
